FAERS Safety Report 6870928-1 (Version None)
Quarter: 2010Q2

REPORT INFORMATION
  Report Type: 
  Country: None (occurrence: None)
  Receive Date: 20100610
  Receipt Date: 20100322
  Transmission Date: 20101027
  Serious: No
  Sender: FDA-Public Use
  Company Number: 2010SP017833

PATIENT
  Age: 24 Year
  Sex: Male
  Weight: 147.419 kg

DRUGS (1)
  1. SAPHRIS [Suspect]
     Indication: BIPOLAR DISORDER
     Dosage: 5 MG;BID;SL
     Route: 060
     Dates: start: 20100317, end: 20100321

REACTIONS (2)
  - ABDOMINAL PAIN [None]
  - HEADACHE [None]
